FAERS Safety Report 5305565-3 (Version None)
Quarter: 2007Q2

REPORT INFORMATION
  Report Type: 
  Country: None (occurrence: None)
  Receive Date: 20070424
  Receipt Date: 20070413
  Transmission Date: 20071010
  Serious: Yes (Death)
  Sender: FDA-Public Use
  Company Number: RU-JNJFOC-20070404025

PATIENT
  Sex: Male

DRUGS (6)
  1. RISPOLEPT CONSTA [Suspect]
     Route: 030
  2. RISPOLEPT CONSTA [Suspect]
     Indication: SCHIZOPHRENIA
     Route: 030
  3. RISPOLEPT [Suspect]
     Route: 048
  4. RISPOLEPT [Suspect]
     Indication: SCHIZOPHRENIA
     Route: 048
  5. TIZERCIN [Concomitant]
  6. TIZERCIN [Concomitant]

REACTIONS (2)
  - BRAIN OEDEMA [None]
  - CARDIAC FAILURE ACUTE [None]
